FAERS Safety Report 22035912 (Version 2)
Quarter: 2023Q1

REPORT INFORMATION
  Report Type: Spontaneous
  Country: US (occurrence: US)
  Receive Date: 20230224
  Receipt Date: 20230324
  Transmission Date: 20230418
  Serious: Yes (Death, Hospitalization)
  Sender: FDA-Public Use
  Company Number: US-JNJFOC-20230247831

PATIENT
  Age: 89 Year
  Sex: Female

DRUGS (5)
  1. XARELTO [Suspect]
     Active Substance: RIVAROXABAN
     Indication: Atrial fibrillation
     Dosage: BEEN TAKING SINCE 10 YEARS
     Route: 048
     Dates: end: 20230201
  2. XARELTO [Suspect]
     Active Substance: RIVAROXABAN
     Indication: Cerebrovascular accident prophylaxis
  3. XARELTO [Suspect]
     Active Substance: RIVAROXABAN
     Indication: Cardiac failure chronic
  4. ENTRESTO [Concomitant]
     Active Substance: SACUBITRIL\VALSARTAN
     Indication: Atrial fibrillation
     Dosage: PATIENT WAS USING THIS DRUG FOR 8 TO 10 YEARS.
     Route: 065
     Dates: end: 20230201
  5. COREG [Concomitant]
     Active Substance: CARVEDILOL
     Indication: Blood pressure abnormal
     Dosage: PATIENT WAS USING THIS DRUG FOR 8 TO 10 YEARS.
     Route: 065
     Dates: end: 20230201

REACTIONS (3)
  - Myocardial infarction [Fatal]
  - Dementia [Fatal]
  - Cardiac failure chronic [Fatal]
